FAERS Safety Report 9942812 (Version 1)
Quarter: 2014Q1

REPORT INFORMATION
  Report Type: Report from Study
  Country: US (occurrence: US)
  Receive Date: 20140303
  Receipt Date: 20140303
  Transmission Date: 20141002
  Serious: No
  Sender: FDA-Public Use
  Company Number: US-ABBVIE-13P-163-1045900-00

PATIENT
  Age: 39 Year
  Sex: Female

DRUGS (6)
  1. HUMIRA [Suspect]
     Indication: COLITIS ULCERATIVE
     Dates: start: 20130121
  2. PRILOSEC [Concomitant]
     Indication: PRODUCT USED FOR UNKNOWN INDICATION
  3. LEXAPRO [Concomitant]
     Indication: DEPRESSION
  4. COLAZAL [Concomitant]
     Indication: COLITIS ULCERATIVE
  5. FLAGYL COMPAK [Concomitant]
     Indication: COLITIS ULCERATIVE
  6. MESALAMINE [Concomitant]
     Indication: COLITIS ULCERATIVE
     Dosage: EVERY NIGHT

REACTIONS (3)
  - Device malfunction [Unknown]
  - Device malfunction [Unknown]
  - Injection site haemorrhage [Unknown]
